FAERS Safety Report 23007823 (Version 2)
Quarter: 2023Q4

REPORT INFORMATION
  Report Type: Spontaneous
  Country: ES (occurrence: ES)
  Receive Date: 20230929
  Receipt Date: 20231003
  Transmission Date: 20240109
  Serious: Yes (Hospitalization)
  Sender: FDA-Public Use
  Company Number: ES-BAYER-2023A134687

PATIENT

DRUGS (2)
  1. VERICIGUAT HYDROCHLORIDE [Suspect]
     Active Substance: VERICIGUAT HYDROCHLORIDE
     Indication: Left ventricular failure
     Dosage: UNK
  2. LEVOSIMENDAN [Suspect]
     Active Substance: LEVOSIMENDAN
     Dosage: UNK

REACTIONS (2)
  - Cardiac failure [Unknown]
  - Hospitalisation [Unknown]
